FAERS Safety Report 9460557 (Version 1)
Quarter: 2013Q3

REPORT INFORMATION
  Report Type: Report from Study
  Country: DE (occurrence: DE)
  Receive Date: 20130815
  Receipt Date: 20130815
  Transmission Date: 20140515
  Serious: Yes (Hospitalization)
  Sender: FDA-Public Use
  Company Number: DE-ABBOTT-13P-062-1132236-00

PATIENT
  Age: 42 Year
  Sex: Male
  Weight: 83 kg

DRUGS (3)
  1. HUMIRA [Suspect]
     Indication: ANKYLOSING SPONDYLITIS
     Route: 058
     Dates: start: 20120906, end: 201305
  2. IBUPROFEN [Concomitant]
     Indication: ANKYLOSING SPONDYLITIS
     Dates: start: 20120908
  3. IBUPROFEN [Concomitant]
     Dates: end: 201303

REACTIONS (4)
  - Inguinal hernia [Recovered/Resolved]
  - Coronary artery disease [Not Recovered/Not Resolved]
  - Haematochezia [Recovered/Resolved]
  - Gastrooesophageal reflux disease [Not Recovered/Not Resolved]
